FAERS Safety Report 4792618-1 (Version None)
Quarter: 2005Q4

REPORT INFORMATION
  Report Type: 
  Country: None (occurrence: None)
  Receive Date: 20051010
  Receipt Date: 20051006
  Transmission Date: 20060501
  Serious: Yes (Hospitalization)
  Sender: FDA-Public Use
  Company Number: DE-SANOFI-SYNTHELABO-F01200502067

PATIENT
  Sex: Female

DRUGS (2)
  1. OXALIPLATIN [Suspect]
     Indication: RECTAL CANCER
     Route: 042
     Dates: start: 20041227, end: 20050103
  2. CAPECITABINE [Suspect]
     Indication: RECTAL CANCER
     Route: 042
     Dates: start: 20041227, end: 20050109

REACTIONS (3)
  - BLOOD CREATININE INCREASED [None]
  - DYSPNOEA [None]
  - RENAL FAILURE [None]
